FAERS Safety Report 6263495-7 (Version None)
Quarter: 2009Q3

REPORT INFORMATION
  Report Type: 
  Country: None (occurrence: None)
  Receive Date: 20090710
  Receipt Date: 20090409
  Transmission Date: 20100115
  Serious: No
  Sender: FDA-Public Use
  Company Number: A0773642A

PATIENT
  Age: 47 Year
  Sex: Female

DRUGS (2)
  1. TYKERB [Suspect]
     Indication: DRUG USE FOR UNKNOWN INDICATION
     Dosage: 1250MGD PER DAY
     Route: 048
     Dates: start: 20090308, end: 20090401
  2. XELODA [Suspect]
     Indication: DRUG USE FOR UNKNOWN INDICATION
     Dosage: 1500MG TWICE PER DAY
     Route: 048
     Dates: start: 20090308, end: 20090328

REACTIONS (4)
  - ABDOMINAL PAIN [None]
  - DECREASED APPETITE [None]
  - FATIGUE [None]
  - NAUSEA [None]
